FAERS Safety Report 12499900 (Version 1)
Quarter: 2016Q2

REPORT INFORMATION
  Report Type: Spontaneous
  Country: US (occurrence: None)
  Receive Date: 20160624
  Receipt Date: 20160624
  Transmission Date: 20160815
  Serious: No
  Sender: FDA-Public Use
  Company Number: None

PATIENT
  Age: 47 Year
  Sex: Male
  Weight: 78.1 kg

DRUGS (2)
  1. PRAVASTATIN 10MG GENERIC [Suspect]
     Active Substance: PRAVASTATIN\PRAVASTATIN SODIUM
     Indication: HYPERCHOLESTEROLAEMIA
     Route: 048
     Dates: start: 20130118, end: 20140217
  2. SIMVASTATIN 20 MG =} 40 MG GENERIC [Suspect]
     Active Substance: SIMVASTATIN
     Indication: HYPERCHOLESTEROLAEMIA
     Route: 048
     Dates: start: 20091027, end: 20120118

REACTIONS (3)
  - Fatigue [None]
  - Mental impairment [None]
  - Confusional state [None]

NARRATIVE: CASE EVENT DATE: 20120118
